FAERS Safety Report 4844808-7 (Version None)
Quarter: 2005Q4

REPORT INFORMATION
  Report Type: 
  Country: None (occurrence: None)
  Receive Date: 20051129
  Receipt Date: 20051109
  Transmission Date: 20060501
  Serious: Yes (Life-Threatening, Hospitalization)
  Sender: FDA-Public Use
  Company Number: 219669

PATIENT
  Age: 70 Year
  Sex: Male

DRUGS (1)
  1. AVASTIN [Suspect]
     Indication: RENAL CELL CARCINOMA STAGE UNSPECIFIED
     Dosage: 350 MG, Q2W, INTRAVNEOUS
     Route: 042
     Dates: start: 20050101, end: 20050421

REACTIONS (2)
  - EPISTAXIS [None]
  - THERAPY NON-RESPONDER [None]
